FAERS Safety Report 15308407 (Version 2)
Quarter: 2018Q3

REPORT INFORMATION
  Report Type: Report from Study
  Country: PA (occurrence: PA)
  Receive Date: 20180822
  Receipt Date: 20180906
  Transmission Date: 20181010
  Serious: Yes (Other)
  Sender: FDA-Public Use
  Company Number: PHHY2018PA077372

PATIENT
  Age: 39 Year
  Sex: Male
  Weight: 86.17 kg

DRUGS (2)
  1. TASIGNA [Suspect]
     Active Substance: NILOTINIB
     Indication: CHRONIC MYELOID LEUKAEMIA
     Dosage: UNK
     Route: 065
  2. TASIGNA [Suspect]
     Active Substance: NILOTINIB
     Dosage: UNK
     Route: 065
     Dates: start: 201803, end: 20180814

REACTIONS (4)
  - Malignant neoplasm progression [Unknown]
  - Chronic myeloid leukaemia [Unknown]
  - Blood triglycerides increased [Unknown]
  - Cytogenetic analysis abnormal [Unknown]
